FAERS Safety Report 9915533 (Version 1)
Quarter: 2014Q1

REPORT INFORMATION
  Report Type: Spontaneous
  Country: GB (occurrence: GB)
  Receive Date: 20140221
  Receipt Date: 20140221
  Transmission Date: 20141002
  Serious: Yes (Life-Threatening, Hospitalization)
  Sender: FDA-Public Use
  Company Number: GB-BRISTOL-MYERS SQUIBB COMPANY-20209599

PATIENT
  Age: 53 Year
  Sex: Male

DRUGS (7)
  1. ABILIFY [Suspect]
     Indication: BIPOLAR DISORDER
     Route: 048
     Dates: start: 201203, end: 20120831
  2. CLOZAPINE [Concomitant]
  3. KWELL [Concomitant]
  4. LEVOTHYROXINE [Concomitant]
  5. PRIADEL [Concomitant]
  6. PRO-BANTHINE [Concomitant]
  7. VALPROATE [Concomitant]

REACTIONS (4)
  - Catatonia [Recovered/Resolved]
  - Mental impairment [Recovering/Resolving]
  - Pyrexia [Unknown]
  - Hypertonia [Unknown]
